FAERS Safety Report 10396105 (Version 1)
Quarter: 2014Q1

REPORT INFORMATION
  Report Type: Spontaneous
  Country: US (occurrence: None)
  Receive Date: 20130524
  Receipt Date: 20130524
  Transmission Date: 20141002
  Serious: No
  Sender: FDA-Public Use
  Company Number: PHEH2012US021141

PATIENT
  Age: 31 Year
  Sex: Male

DRUGS (1)
  1. GILENYA (FINGOLIMOD) CAPSULE, 0.5MG [Suspect]
     Indication: MULTIPLE SCLEROSIS
     Route: 048
     Dates: start: 20121019, end: 20121023

REACTIONS (7)
  - Pyrexia [None]
  - Chest discomfort [None]
  - Neutropenia [None]
  - Blood glucose increased [None]
  - Diarrhoea [None]
  - Leukopenia [None]
  - Lymphocyte count decreased [None]
